FAERS Safety Report 8370769-2 (Version None)
Quarter: 2012Q2

REPORT INFORMATION
  Report Type: 
  Country: None (occurrence: None)
  Receive Date: 20120518
  Receipt Date: 20120320
  Transmission Date: 20120825
  Serious: No
  Sender: FDA-Public Use
  Company Number: US-ALEXION-A201200521

PATIENT
  Sex: Male
  Weight: 82.54 kg

DRUGS (15)
  1. COMBIVENT [Concomitant]
     Indication: CHRONIC OBSTRUCTIVE PULMONARY DISEASE
     Dosage: INHALER
  2. NORVASC [Concomitant]
     Dosage: UNK
  3. XOPENEX [Concomitant]
     Indication: CHRONIC OBSTRUCTIVE PULMONARY DISEASE
     Dosage: INHALER
  4. SINGULAIR [Concomitant]
     Indication: CHRONIC OBSTRUCTIVE PULMONARY DISEASE
     Dosage: UNK
  5. SOLIRIS [Suspect]
     Dosage: 900 MG, Q2W
     Route: 042
     Dates: start: 20110216, end: 20111109
  6. HYDROCODONE [Concomitant]
     Indication: PAIN
     Dosage: 5/500, PRN
  7. VITAMIN B-12 [Concomitant]
     Indication: ANAEMIA VITAMIN B12 DEFICIENCY
     Dosage: UNK
     Route: 048
  8. CLONIDINE [Concomitant]
     Dosage: UNK
  9. ZYRTEC [Concomitant]
     Indication: SEASONAL ALLERGY
     Dosage: UNK
  10. LOPRESSOR [Concomitant]
     Dosage: UNK
  11. LASIX [Concomitant]
     Indication: CHRONIC OBSTRUCTIVE PULMONARY DISEASE
     Dosage: UNK
     Route: 048
  12. NEXIUM [Concomitant]
     Indication: GASTROOESOPHAGEAL REFLUX DISEASE
     Dosage: 20 MG, BID
     Route: 048
  13. SOLIRIS [Suspect]
     Indication: PAROXYSMAL NOCTURNAL HAEMOGLOBINURIA
     Dosage: 900 MG, Q2W
     Route: 042
     Dates: start: 20120302
  14. SOLIRIS [Suspect]
     Dosage: 1200 MG, Q2W
     Route: 042
     Dates: start: 20111109, end: 20120302
  15. SOLIRIS [Suspect]
     Dosage: 600 MG, QW
     Route: 042
     Dates: start: 20110106, end: 20110216

REACTIONS (1)
  - UPPER RESPIRATORY TRACT INFECTION [None]
